FAERS Safety Report 16479540 (Version 1)
Quarter: 2019Q2

REPORT INFORMATION
  Report Type: Spontaneous
  Country: GB (occurrence: GB)
  Receive Date: 20190626
  Receipt Date: 20190626
  Transmission Date: 20190711
  Serious: Yes (Hospitalization)
  Sender: FDA-Public Use
  Company Number: GB-PFIZER INC-2019268646

PATIENT
  Sex: Female

DRUGS (1)
  1. TAZOCIN [Suspect]
     Active Substance: PIPERACILLIN SODIUM\TAZOBACTAM SODIUM
     Indication: SEPSIS
     Dosage: UNK
     Route: 042
     Dates: start: 20190409, end: 20190409

REACTIONS (5)
  - Skin discolouration [Recovered/Resolved]
  - Hypersensitivity [Recovered/Resolved]
  - Autoimmune disorder [Not Recovered/Not Resolved]
  - Angioedema [Recovered/Resolved]
  - Hair colour changes [Recovered/Resolved]

NARRATIVE: CASE EVENT DATE: 2019
